FAERS Safety Report 18486620 (Version 2)
Quarter: 2022Q2

REPORT INFORMATION
  Report Type: Spontaneous
  Country: US (occurrence: US)
  Receive Date: 20201110
  Receipt Date: 20220519
  Transmission Date: 20220721
  Serious: No
  Sender: FDA-Public Use
  Company Number: US-PFIZER INC-2020443035

PATIENT
  Age: 65 Year

DRUGS (8)
  1. CLINDAMYCIN [Suspect]
     Active Substance: CLINDAMYCIN
     Dosage: UNK
  2. CLEOCIN [Suspect]
     Active Substance: CLINDAMYCIN PHOSPHATE
     Dosage: UNK
  3. PROZAC [Suspect]
     Active Substance: FLUOXETINE HYDROCHLORIDE
     Dosage: UNK
  4. SOMA [Suspect]
     Active Substance: CARISOPRODOL
     Dosage: UNK
  5. BACLOFEN [Suspect]
     Active Substance: BACLOFEN
     Dosage: UNK
  6. CEFIXIME [Suspect]
     Active Substance: CEFIXIME
     Dosage: UNK
  7. DANTROLENE [Suspect]
     Active Substance: DANTROLENE
     Dosage: UNK
  8. ALPRAZOLAM [Concomitant]
     Active Substance: ALPRAZOLAM
     Dosage: 5 MG, AS NEEDED (PRN)

REACTIONS (1)
  - Illness [Unknown]
